FAERS Safety Report 4932386-3 (Version None)
Quarter: 2006Q1

REPORT INFORMATION
  Report Type: 
  Country: None (occurrence: None)
  Receive Date: 20060228
  Receipt Date: 20060217
  Transmission Date: 20060701
  Serious: Yes (Hospitalization)
  Sender: FDA-Public Use
  Company Number: 200610766BCC

PATIENT
  Age: 75 Year
  Sex: Male
  Weight: 113.3993 kg

DRUGS (7)
  1. ALEVE [Suspect]
     Indication: PAIN
     Dosage: 220 MG, ORAL
     Route: 048
  2. HYDROCHLOROTHIAZIDE [Concomitant]
  3. WARFARIN SODIUM [Concomitant]
  4. MAGNESIUM OXIDE [Concomitant]
  5. DILTIAZEM [Concomitant]
  6. ASPIRIN [Concomitant]
  7. LOVASTATIN [Concomitant]

REACTIONS (1)
  - CEREBROVASCULAR ACCIDENT [None]
